FAERS Safety Report 22261045 (Version 2)
Quarter: 2023Q2

REPORT INFORMATION
  Report Type: Report from Study
  Country: ES (occurrence: ES)
  Receive Date: 20230427
  Receipt Date: 20230508
  Transmission Date: 20230722
  Serious: Yes (Hospitalization, Other)
  Sender: FDA-Public Use
  Company Number: ES-CELLTRION HEALTHCARE HUNGARY KFT-2023ES008223

PATIENT
  Age: 39 Year
  Sex: Female
  Weight: 67.8 kg

DRUGS (11)
  1. RITUXIMAB [Suspect]
     Active Substance: RITUXIMAB
     Indication: Follicular lymphoma
     Dosage: FREQ:4 WK;375 MG/M^2 CYCLE 2 TO 5, EVERY 4 WEEKS
     Route: 042
     Dates: start: 20230321, end: 20230321
  2. RITUXIMAB [Suspect]
     Active Substance: RITUXIMAB
     Dosage: 375 MG/M2 DAY 1, 8, 15 AND 22 OF CYCLE 1, EVERY 1 WEEKS
     Route: 042
     Dates: start: 20230221, end: 20230314
  3. LENALIDOMIDE [Suspect]
     Active Substance: LENALIDOMIDE
     Indication: Follicular lymphoma
     Dosage: 20 MG DAY 1 TO 21 OF EACH 28 DAY CYCLE, EVERY 1 DAYS
     Route: 048
     Dates: start: 20230221, end: 20230321
  4. LENALIDOMIDE [Suspect]
     Active Substance: LENALIDOMIDE
     Dosage: 20 MG DAY 1 TO 21 OF EACH 28 DAY CYCLE, EVERY 1 DAYS
     Route: 048
     Dates: start: 20230221, end: 20230401
  5. EPCORITAMAB [Suspect]
     Active Substance: EPCORITAMAB
     Indication: Follicular lymphoma
     Dosage: 0.16 MG PRIMING DOSE; C1, D1
     Route: 058
     Dates: start: 20230221, end: 20230221
  6. EPCORITAMAB [Suspect]
     Active Substance: EPCORITAMAB
     Dosage: 24 MG, FULL DOSE 1 EVERY 1 WEEK
     Route: 058
     Dates: start: 20230314, end: 20230328
  7. EPCORITAMAB [Suspect]
     Active Substance: EPCORITAMAB
     Dosage: 0.8 MG INTERMEDIATE DOSE; C1, D8
     Route: 058
     Dates: start: 20230228, end: 20230228
  8. ACETAMINOPHEN [Concomitant]
     Active Substance: ACETAMINOPHEN
     Indication: Premedication
     Dosage: 1000 MILLIGRAM
     Dates: start: 20230221, end: 20230328
  9. ACETAMINOPHEN [Concomitant]
     Active Substance: ACETAMINOPHEN
     Indication: Cytokine release syndrome
  10. PREDNISONE ACETATE [Concomitant]
     Active Substance: PREDNISONE ACETATE
     Indication: Cytokine release syndrome
     Dosage: 100 MG, EVERY 1 DAYS
     Dates: start: 20230221, end: 20230328
  11. POLARAMINE [Concomitant]
     Active Substance: DEXCHLORPHENIRAMINE MALEATE
     Indication: Premedication
     Dosage: 5 MG, TOTAL
     Dates: start: 20230221, end: 20230328

REACTIONS (5)
  - Pneumonia [Not Recovered/Not Resolved]
  - Cytokine release syndrome [Unknown]
  - Rash [Unknown]
  - Infusion related reaction [Unknown]
  - Conjunctivitis [Unknown]

NARRATIVE: CASE EVENT DATE: 20230201
